FAERS Safety Report 14759417 (Version 1)
Quarter: 2018Q2

REPORT INFORMATION
  Report Type: Spontaneous
  Country: GB (occurrence: GB)
  Receive Date: 20180413
  Receipt Date: 20180413
  Transmission Date: 20180711
  Serious: Yes (Other)
  Sender: FDA-Public Use
  Company Number: GB-TEVA-2018-GB-881557

PATIENT
  Age: 56 Year
  Sex: Female
  Weight: 88 kg

DRUGS (2)
  1. AMLODIPINE [Suspect]
     Active Substance: AMLODIPINE BESYLATE
     Dates: start: 20171128
  2. TOPIRAMATE. [Concomitant]
     Active Substance: TOPIRAMATE
     Dosage: 5 CURIES DAILY; 2 IN THE MORNING 3 AT NIGHT
     Dates: start: 20170606

REACTIONS (4)
  - Headache [Recovered/Resolved]
  - Vomiting [Unknown]
  - Dizziness [Unknown]
  - Nausea [Recovered/Resolved]

NARRATIVE: CASE EVENT DATE: 20171128
